FAERS Safety Report 9031196 (Version 1)
Quarter: 2013Q1

REPORT INFORMATION
  Report Type: Spontaneous
  Country: US (occurrence: US)
  Receive Date: 20130123
  Receipt Date: 20130123
  Transmission Date: 20140127
  Serious: Yes (Other)
  Sender: FDA-Public Use
  Company Number: CHPA2013US001367

PATIENT
  Age: 57 Year
  Sex: Male

DRUGS (2)
  1. WALGREEN^S [Suspect]
     Indication: SMOKING CESSATION THERAPY
     Dosage: 21 MG, UNK
     Route: 062
     Dates: start: 20130105
  2. MUSCLE RELAXANTS (NOS) [Concomitant]
     Dosage: UNK, UNK

REACTIONS (7)
  - Disorientation [Unknown]
  - Fall [Recovering/Resolving]
  - Chest discomfort [Recovered/Resolved]
  - Chest pain [Recovered/Resolved]
  - Dizziness [Recovered/Resolved]
  - Abnormal dreams [Recovered/Resolved]
  - Inappropriate schedule of drug administration [Unknown]
